FAERS Safety Report 18383070 (Version 1)
Quarter: 2020Q4

REPORT INFORMATION
  Report Type: Spontaneous
  Country: US (occurrence: US)
  Receive Date: 20201014
  Receipt Date: 20201014
  Transmission Date: 20210114
  Serious: Yes (Hospitalization, Other)
  Sender: FDA-Public Use
  Company Number: US-PFIZER INC-2020393904

PATIENT
  Age: 69 Year
  Sex: Female

DRUGS (9)
  1. BUMEX [Suspect]
     Active Substance: BUMETANIDE
     Indication: PULMONARY FIBROSIS
  2. ATENOLOL. [Suspect]
     Active Substance: ATENOLOL
     Indication: HYPERTENSION
     Dosage: 25 MG, DAILY (25 MG MILLIGRAM(S)), 1 IN 1DAYS)
     Route: 048
  3. BUMEX [Suspect]
     Active Substance: BUMETANIDE
     Indication: PULMONARY HYPERTENSION
  4. ALDACTONE [Suspect]
     Active Substance: SPIRONOLACTONE
     Indication: HYPERTENSION
     Dosage: 25 MG, DAILY (25 MG MILLIGRAM(S)),1 IN 1DAYS)
     Route: 048
     Dates: start: 202006
  5. BUMEX [Suspect]
     Active Substance: BUMETANIDE
     Indication: DIURETIC THERAPY
     Dosage: 2 MG, DAILY (1 MG MILLIGRAM(S)), 1 IN 0.5DAYS)
     Route: 048
     Dates: start: 202006
  6. OFEV [Suspect]
     Active Substance: NINTEDANIB
     Indication: PULMONARY FIBROSIS
     Dosage: 200 MG, DAILY (100 MG MILLIGRAM(S)),1 IN 0.5DAYS)/(100 MILLIGRAM, 2 EVERY 1 DAYS)
     Route: 048
     Dates: start: 202006
  7. PEPCID [Concomitant]
     Active Substance: FAMOTIDINE
     Dosage: UNK
  8. PROTONIX [Concomitant]
     Active Substance: PANTOPRAZOLE SODIUM
     Dosage: UNK
  9. SILDENAFIL CITRATE. [Suspect]
     Active Substance: SILDENAFIL CITRATE
     Indication: PULMONARY ARTERIAL HYPERTENSION
     Dosage: 1200 MG, DAILY (1200 MG MILLIGRAM(S) (600 MG MILLIGRAM(S)), 1 IN 0.5DAYS))
     Route: 048
     Dates: start: 202006

REACTIONS (1)
  - Feeling abnormal [Not Recovered/Not Resolved]

NARRATIVE: CASE EVENT DATE: 202006
